FAERS Safety Report 8761070 (Version 3)
Quarter: 2012Q4

REPORT INFORMATION
  Report Type: 
  Country: US (occurrence: US)
  Receive Date: 20120830
  Receipt Date: 20121115
  Transmission Date: 20130627
  Serious: Yes (Life-Threatening, Hospitalization)
  Sender: FDA-Public Use
  Company Number: US-BAYER-2012-063761

PATIENT
  Age: 67 Year
  Sex: Male

DRUGS (10)
  1. AFLIBERCEPT [Suspect]
     Indication: AGE-RELATED MACULAR DEGENERATION
     Dosage: total of 13 doses of masked VEGF Trap-Eye or ranibizumab Q4WKS
     Route: 031
     Dates: start: 20080915, end: 20090817
  2. AFLIBERCEPT [Suspect]
     Indication: AGE-RELATED MACULAR DEGENERATION
     Dosage: total of 4 doses of masked VEGF Trap-Eye or ranibizumab Q4WKS PRN
     Route: 031
     Dates: start: 20090914, end: 20100726
  3. AFLIBERCEPT [Suspect]
     Indication: AGE-RELATED MACULAR DEGENERATION
     Dosage: total of 13 doses of VEGF TRAP-Eye 2 mg, PRN
     Route: 031
     Dates: start: 20100923
  4. ACETYLSALICYLIC ACID({=100 MG) [Suspect]
     Indication: ROUTINE HEALTH MAINTENANCE
     Dosage: 162 mg, QD
     Dates: start: 2010
  5. LISINOPRIL [Concomitant]
     Indication: HYPERTENSION
     Dosage: 20 mg, BID
     Dates: start: 2006
  6. AMLODIPINE [Concomitant]
     Indication: HYPERTENSION
     Dosage: 10 mg, UNK
     Dates: start: 2006
  7. METOPROLOL [Concomitant]
     Indication: HYPERTENSION
     Dosage: 50 mg, BID
     Dates: start: 2006
  8. FISH OIL [Concomitant]
     Indication: ROUTINE HEALTH MAINTENANCE
     Dosage: 1000 mg, QD
     Dates: start: 2007
  9. OCUVITE PRESERVISION [Concomitant]
     Indication: ROUTINE HEALTH MAINTENANCE
     Dosage: 1 DF, BID
     Dates: start: 2008
  10. ADVAIR [Concomitant]
     Indication: CHRONIC OBSTRUCTIVE PULMONARY DISEASE
     Dosage: 2 puff(s), QD
     Dates: start: 20111001

REACTIONS (2)
  - Splenic rupture [Recovered/Resolved]
  - Clostridium difficile colitis [Recovered/Resolved]
